FAERS Safety Report 6871942-2 (Version None)
Quarter: 2010Q3

REPORT INFORMATION
  Report Type: 
  Country: None (occurrence: None)
  Receive Date: 20100723
  Receipt Date: 20100720
  Transmission Date: 20110219
  Serious: Yes (Hospitalization)
  Sender: FDA-Public Use
  Company Number: JP-EISAI INC.-E2020-07111-CLI-JP

PATIENT
  Sex: Male
  Weight: 65 kg

DRUGS (9)
  1. ARICEPT [Suspect]
     Route: 048
     Dates: start: 20090121, end: 20100316
  2. ARICEPT [Suspect]
     Route: 048
     Dates: start: 20100317
  3. HALCION [Concomitant]
     Indication: DEMENTIA ALZHEIMER'S TYPE
     Route: 048
     Dates: start: 20090121
  4. CABASER [Concomitant]
     Route: 048
  5. PURSENNID [Concomitant]
     Route: 048
  6. GASMOTIN [Concomitant]
     Route: 048
  7. PANTOSIN [Concomitant]
     Route: 048
  8. KAMAG G [Concomitant]
     Route: 048
  9. LAXOBERON [Concomitant]
     Route: 048
     Dates: end: 20100305

REACTIONS (2)
  - ALTERED STATE OF CONSCIOUSNESS [None]
  - SINUS BRADYCARDIA [None]
